FAERS Safety Report 7594263-1 (Version None)
Quarter: 2011Q3

REPORT INFORMATION
  Report Type: 
  Country: None (occurrence: None)
  Receive Date: 20110706
  Receipt Date: 20110706
  Transmission Date: 20111222
  Serious: Yes (Hospitalization)
  Sender: FDA-Public Use
  Company Number: None

PATIENT
  Age: 55 Year
  Sex: Male
  Weight: 81.646 kg

DRUGS (1)
  1. NARCAN [Suspect]
     Indication: OVERDOSE
     Dosage: 1.6 MG
     Route: 017
     Dates: start: 20110604, end: 20110604

REACTIONS (2)
  - CEREBROVASCULAR ACCIDENT [None]
  - OVERDOSE [None]
